FAERS Safety Report 5329752-3 (Version None)
Quarter: 2007Q2

REPORT INFORMATION
  Report Type: 
  Country: None (occurrence: None)
  Receive Date: 20070521
  Receipt Date: 20070516
  Transmission Date: 20071010
  Serious: Yes (Hospitalization)
  Sender: FDA-Public Use
  Company Number: CZ-SOLVAY-00207032342

PATIENT
  Age: 11395 Day
  Sex: Female

DRUGS (9)
  1. PROGESTERONE [Suspect]
     Indication: ILL-DEFINED DISORDER
     Dosage: DAILY DOSE: 600 MILLIGRAM(S)
     Route: 067
     Dates: start: 20070402
  2. MAMAVIT [Concomitant]
     Indication: ROUTINE HEALTH MAINTENANCE
     Dosage: DAILY DOSE: 1 DOSAGE FORM
     Route: 048
     Dates: start: 20070301
  3. ORG 36286 AND PLACEBO OR PUREGON AND PLACEBO [Suspect]
     Indication: OVARIAN HYPERSTIMULATION SYNDROME
     Dosage: DAILY DOSE: 150 INTERNATIONAL UNIT(S)
     Route: 058
     Dates: start: 20070322, end: 20070322
  4. ORG 36286 AND PLACEBO OR PUREGON AND PLACEBO [Suspect]
     Dosage: DAILY DOSE: 150 INTERNATIONAL UNIT(S)
     Route: 058
     Dates: start: 20070322, end: 20070328
  5. PROPOFOL [Concomitant]
     Indication: ANAESTHESIA
     Dosage: DAILY DOSE: 110 MILLIGRAM(S)
     Route: 042
     Dates: start: 20070402, end: 20070402
  6. ALFENTANIL [Concomitant]
     Indication: ANAESTHESIA
     Dosage: DAILY DOSE: 1 MILLILITRE(S)
     Route: 042
     Dates: start: 20070402, end: 20070402
  7. FOLLITROPIN BETA [Suspect]
     Indication: OVARIAN HYPERSTIMULATION SYNDROME
     Dosage: DAILY DOSE: 100 INTERNATIONAL UNIT(S)
     Route: 058
     Dates: start: 20070329, end: 20070330
  8. GANIRELIX ACETATE INJECTION [Suspect]
     Indication: ILL-DEFINED DISORDER
     Dosage: DAILY DOSE: .25 MILLIGRAM(S)
     Route: 058
     Dates: start: 20070326, end: 20070331
  9. CHORIONIC GONADOTROPIN [Suspect]
     Indication: OVARIAN HYPERSTIMULATION SYNDROME
     Dosage: DAILY DOSE: 10000 INTERNATIONAL UNIT(S)
     Route: 058
     Dates: start: 20070331, end: 20070331

REACTIONS (1)
  - ECTOPIC PREGNANCY [None]
